FAERS Safety Report 5868188-3 (Version None)
Quarter: 2008Q3

REPORT INFORMATION
  Report Type: 
  Country: None (occurrence: None)
  Receive Date: 20080902
  Receipt Date: 20080821
  Transmission Date: 20090109
  Serious: Yes (Other)
  Sender: FDA-Public Use
  Company Number: JP-PFIZER INC-2008067991

PATIENT
  Age: 52 Year
  Sex: Male

DRUGS (2)
  1. CHANTIX [Suspect]
     Indication: SMOKING CESSATION THERAPY
     Dosage: DAILY DOSE:2MG
     Route: 048
  2. NORVASC [Concomitant]
     Route: 048

REACTIONS (3)
  - DRUG ERUPTION [None]
  - ERYTHEMA [None]
  - SKIN EXFOLIATION [None]
